FAERS Safety Report 16963435 (Version 1)
Quarter: 2019Q4

REPORT INFORMATION
  Report Type: Spontaneous
  Country: US (occurrence: US)
  Receive Date: 20191025
  Receipt Date: 20191025
  Transmission Date: 20200122
  Serious: No
  Sender: FDA-Public Use
  Company Number: US-TEVA-2019-US-1126456

PATIENT
  Age: 57 Year
  Sex: Female

DRUGS (2)
  1. ESTRADIOL VAGINAL INSERTS [Suspect]
     Active Substance: ESTRADIOL
     Indication: VULVOVAGINAL DRYNESS
  2. ESTRADIOL VAGINAL INSERTS [Suspect]
     Active Substance: ESTRADIOL
     Indication: MENOPAUSE
     Route: 067

REACTIONS (2)
  - Drug ineffective [Unknown]
  - Product substitution issue [Unknown]
